FAERS Safety Report 7498108-X (Version None)
Quarter: 2011Q2

REPORT INFORMATION
  Report Type: 
  Country: None (occurrence: None)
  Receive Date: 20110524
  Receipt Date: 20110512
  Transmission Date: 20111010
  Serious: No
  Sender: FDA-Public Use
  Company Number: US-BIOGENIDEC-2011BI018406

PATIENT
  Age: 52 Year
  Sex: Female

DRUGS (2)
  1. TYSABRI [Suspect]
     Indication: MULTIPLE SCLEROSIS
     Route: 042
     Dates: start: 20100720
  2. TYSABRI [Suspect]
     Route: 042
     Dates: start: 20081126, end: 20091116

REACTIONS (4)
  - MULTIPLE SCLEROSIS RELAPSE [None]
  - FATIGUE [None]
  - ABDOMINAL DISCOMFORT [None]
  - PYREXIA [None]
